FAERS Safety Report 13148747 (Version 3)
Quarter: 2017Q2

REPORT INFORMATION
  Report Type: Spontaneous
  Country: US (occurrence: US)
  Receive Date: 20170125
  Receipt Date: 20170615
  Transmission Date: 20170830
  Serious: No
  Sender: FDA-Public Use
  Company Number: US-PFIZER INC-2017031134

PATIENT
  Age: 39 Year
  Sex: Female

DRUGS (3)
  1. PRISTIQ EXTENDED-RELEASE [Suspect]
     Active Substance: DESVENLAFAXINE SUCCINATE
     Indication: DEPRESSION
     Dosage: 50 MG, UNK
     Dates: start: 201208
  2. ESKALIT [Concomitant]
     Dosage: 450 MG, 1X/DAY
     Dates: start: 2005, end: 201612
  3. ESKALIT [Concomitant]
     Dosage: 450 MG, WEEKLY
     Dates: start: 201612

REACTIONS (2)
  - Drug intolerance [Not Recovered/Not Resolved]
  - Depression [Recovered/Resolved]

NARRATIVE: CASE EVENT DATE: 2012
